FAERS Safety Report 8229166-2 (Version None)
Quarter: 2012Q1

REPORT INFORMATION
  Report Type: 
  Country: None (occurrence: None)
  Receive Date: 20120322
  Receipt Date: 20120313
  Transmission Date: 20120608
  Serious: Yes (Hospitalization)
  Sender: FDA-Public Use
  Company Number: US-JNJFOC-20120306735

PATIENT
  Sex: Female

DRUGS (2)
  1. UNKNOWN MEDICATION [Suspect]
     Indication: EXOSTOSIS
     Route: 008
     Dates: start: 20120307
  2. REMICADE [Suspect]
     Indication: RHEUMATOID ARTHRITIS
     Route: 042
     Dates: start: 20080101

REACTIONS (4)
  - PRODUCT QUALITY ISSUE [None]
  - CHEST DISCOMFORT [None]
  - EXOSTOSIS [None]
  - MALAISE [None]
